FAERS Safety Report 4566185-1 (Version None)
Quarter: 2005Q1

REPORT INFORMATION
  Report Type: 
  Country: None (occurrence: None)
  Receive Date: 20050201
  Receipt Date: 20050120
  Transmission Date: 20050727
  Serious: Yes (Other)
  Sender: FDA-Public Use
  Company Number: US-JNJFOC-20041100747

PATIENT
  Sex: Male
  Weight: 94.35 kg

DRUGS (9)
  1. REMICADE [Suspect]
     Route: 042
  2. REMICADE [Suspect]
     Route: 042
  3. REMICADE [Suspect]
     Route: 042
  4. REMICADE [Suspect]
     Route: 042
  5. PLAQUENIL [Concomitant]
  6. PREDNISONE [Concomitant]
  7. CELEBREX [Concomitant]
  8. COUMADIN [Concomitant]
  9. ALTACE [Concomitant]

REACTIONS (3)
  - INTERVERTEBRAL DISC DEGENERATION [None]
  - POLYMYOSITIS [None]
  - SPINAL COLUMN STENOSIS [None]
